FAERS Safety Report 14195277 (Version 1)
Quarter: 2017Q4

REPORT INFORMATION
  Report Type: Spontaneous
  Country: DK (occurrence: GB)
  Receive Date: 20171116
  Receipt Date: 20171116
  Transmission Date: 20180321
  Serious: Yes (Death, Other)
  Sender: FDA-Public Use
  Company Number: DK-PFIZER INC-K200701131

PATIENT
  Age: 70 Year
  Sex: Male

DRUGS (3)
  1. EPIPEN [Suspect]
     Active Substance: EPINEPHRINE
     Dosage: 0.3 MG, AS NEEDED
     Route: 058
     Dates: start: 20070826, end: 20070826
  2. EPIPEN [Suspect]
     Active Substance: EPINEPHRINE
     Indication: ARTHROPOD STING
     Dosage: 0.3 MG, AS NEEDED
     Route: 058
     Dates: start: 20070826, end: 20070826
  3. ADRENALIN /00003901/ [Suspect]
     Active Substance: EPINEPHRINE
     Indication: ARTHROPOD STING
     Dosage: UNK
     Route: 042
     Dates: start: 20070826, end: 20070826

REACTIONS (5)
  - Cardiac arrest [Fatal]
  - Device use issue [Fatal]
  - Drug ineffective [Fatal]
  - Device failure [Fatal]
  - Product quality issue [Fatal]

NARRATIVE: CASE EVENT DATE: 20070826
